FAERS Safety Report 5981271-7 (Version None)
Quarter: 2008Q4

REPORT INFORMATION
  Report Type: 
  Country: None (occurrence: None)
  Receive Date: 20081205
  Receipt Date: 20081124
  Transmission Date: 20090506
  Serious: Yes (Hospitalization)
  Sender: FDA-Public Use
  Company Number: FR-JNJFOC-20081106101

PATIENT
  Sex: Male

DRUGS (2)
  1. REMICADE [Suspect]
     Indication: DRUG USE FOR UNKNOWN INDICATION
     Route: 042
  2. UNSPECIFIED ANTIBACILLAR DRUG [Suspect]
     Indication: PYREXIA

REACTIONS (8)
  - ANAEMIA [None]
  - ASTHENIA [None]
  - C-REACTIVE PROTEIN INCREASED [None]
  - DRUG INEFFECTIVE [None]
  - HEPATOTOXICITY [None]
  - PYREXIA [None]
  - SYSTEMIC MYCOSIS [None]
  - VASCULAR OCCLUSION [None]
